FAERS Safety Report 14317667 (Version 1)
Quarter: 2017Q4

REPORT INFORMATION
  Report Type: Spontaneous
  Country: US (occurrence: US)
  Receive Date: 20171221
  Receipt Date: 20171221
  Transmission Date: 20180321
  Serious: No
  Sender: FDA-Public Use
  Company Number: None

PATIENT
  Sex: Female
  Weight: 101.25 kg

DRUGS (12)
  1. REPATHA [Suspect]
     Active Substance: EVOLOCUMAB
     Indication: DRUG INTOLERANCE
     Dosage: ?          QUANTITY:1 INJECTION(S);OTHER FREQUENCY:1X/2 WEEKS;?
     Route: 030
     Dates: start: 20170811, end: 20171116
  2. LEXAPRO [Concomitant]
     Active Substance: ESCITALOPRAM OXALATE
  3. OSTEOARTHRITIS-BIFLEX [Concomitant]
  4. MULTIVIT [Concomitant]
     Active Substance: VITAMINS
  5. REPATHA [Suspect]
     Active Substance: EVOLOCUMAB
     Indication: BLOOD CHOLESTEROL INCREASED
     Dosage: ?          QUANTITY:1 INJECTION(S);OTHER FREQUENCY:1X/2 WEEKS;?
     Route: 030
     Dates: start: 20170811, end: 20171116
  6. MUSINEX DM [Concomitant]
     Active Substance: DEXTROMETHORPHAN HYDROBROMIDE\GUAIFENESIN
  7. CQ-10 [Concomitant]
  8. OMEPRAZOLE. [Concomitant]
     Active Substance: OMEPRAZOLE
  9. ECOTRIN [Concomitant]
     Active Substance: ASPIRIN
  10. SYNTHROID [Concomitant]
     Active Substance: LEVOTHYROXINE SODIUM
  11. CPAP MACHINE [Concomitant]
  12. VALSARTAN AND HYDROCHLOROTHIAZIDE [Concomitant]
     Active Substance: HYDROCHLOROTHIAZIDE\VALSARTAN

REACTIONS (2)
  - Myalgia [None]
  - Pain [None]

NARRATIVE: CASE EVENT DATE: 20170913
